FAERS Safety Report 7163922-7 (Version None)
Quarter: 2010Q4

REPORT INFORMATION
  Report Type: 
  Country: None (occurrence: None)
  Receive Date: 20101210
  Receipt Date: 20101210
  Transmission Date: 20110411
  Serious: Yes (Hospitalization)
  Sender: FDA-Public Use
  Company Number: None

PATIENT
  Sex: Female
  Weight: 52.09 kg

DRUGS (2)
  1. ELOXATIN [Suspect]
     Dosage: 15 MG
     Dates: end: 20101201
  2. LEUCOVORIN CALCIUM [Suspect]
     Dosage: 100 MG
     Dates: end: 20101201

REACTIONS (3)
  - ANAPHYLACTIC REACTION [None]
  - OXYGEN SATURATION DECREASED [None]
  - TREATMENT NONCOMPLIANCE [None]
